FAERS Safety Report 20572154 (Version 2)
Quarter: 2022Q1

REPORT INFORMATION
  Report Type: Spontaneous
  Country: US (occurrence: US)
  Receive Date: 20220309
  Receipt Date: 20220311
  Transmission Date: 20220423
  Serious: No
  Sender: FDA-Public Use
  Company Number: US-BAYER-2022A035000

PATIENT
  Age: 56 Year
  Sex: Female

DRUGS (1)
  1. ALEVEX [Suspect]
     Active Substance: CAMPHOR (SYNTHETIC)\MENTHOL
     Dosage: UNK

REACTIONS (1)
  - Nausea [Unknown]
